FAERS Safety Report 25360950 (Version 1)
Quarter: 2025Q2

REPORT INFORMATION
  Report Type: Spontaneous
  Country: FR (occurrence: FR)
  Receive Date: 20250527
  Receipt Date: 20250527
  Transmission Date: 20250716
  Serious: Yes (Other)
  Sender: ACCORD
  Company Number: None

PATIENT
  Age: 28 Year
  Sex: Female

DRUGS (1)
  1. FLUOXETINE [Suspect]
     Active Substance: FLUOXETINE HYDROCHLORIDE
     Indication: Post-traumatic stress disorder
     Dates: start: 20250424, end: 20250424

REACTIONS (2)
  - Dyspepsia [Recovered/Resolved]
  - Photophobia [Recovered/Resolved]

NARRATIVE: CASE EVENT DATE: 20250424
